FAERS Safety Report 7399647-2 (Version None)
Quarter: 2011Q2

REPORT INFORMATION
  Report Type: 
  Country: None (occurrence: None)
  Receive Date: 20110407
  Receipt Date: 20110331
  Transmission Date: 20111010
  Serious: Yes (Hospitalization, Other)
  Sender: FDA-Public Use
  Company Number: US-ROCHE-552220

PATIENT
  Sex: Female
  Weight: 45.4 kg

DRUGS (1)
  1. ACCUTANE [Suspect]
     Indication: ACNE
     Dosage: THE PATIENT WAS TAKING ACCUTANE 40 MG ONE DAILY
     Route: 048
     Dates: start: 19980301, end: 19980801

REACTIONS (9)
  - COLITIS ULCERATIVE [None]
  - HEADACHE [None]
  - INFLAMMATORY BOWEL DISEASE [None]
  - INFLUENZA LIKE ILLNESS [None]
  - DEPRESSION [None]
  - NIGHT BLINDNESS [None]
  - CALCULUS URETERIC [None]
  - COLITIS [None]
  - SUICIDAL IDEATION [None]
